FAERS Safety Report 9966525 (Version 2)
Quarter: 2014Q1

REPORT INFORMATION
  Report Type: Report from Study
  Country: PR (occurrence: PR)
  Receive Date: 20140305
  Receipt Date: 20140305
  Transmission Date: 20141002
  Serious: No
  Sender: FDA-Public Use
  Company Number: PR-ABBVIE-12P-131-1010108-00

PATIENT
  Sex: Female
  Weight: 42.22 kg

DRUGS (5)
  1. HUMIRA [Suspect]
     Indication: RHEUMATOID ARTHRITIS
     Route: 058
  2. LEUCOVORIN CALCIUM [Concomitant]
     Indication: MINERAL SUPPLEMENTATION
     Route: 048
  3. CENTRUM [Concomitant]
     Route: 048
  4. METHOTREXATE [Concomitant]
     Indication: RHEUMATOID ARTHRITIS
     Route: 048
  5. CALTRATE [Concomitant]
     Route: 048

REACTIONS (1)
  - Nasopharyngitis [Recovered/Resolved]
